FAERS Safety Report 13281717 (Version 3)
Quarter: 2017Q3

REPORT INFORMATION
  Report Type: Spontaneous
  Country: US (occurrence: US)
  Receive Date: 20170301
  Receipt Date: 20170721
  Transmission Date: 20171127
  Serious: Yes (Hospitalization, Other)
  Sender: FDA-Public Use
  Company Number: US-PFIZER INC-2017085932

PATIENT
  Age: 83 Year
  Sex: Female
  Weight: 45.36 kg

DRUGS (2)
  1. LYRICA [Suspect]
     Active Substance: PREGABALIN
     Indication: BACK PAIN
     Dosage: 1 DF, 2X/DAY (2 CAPSULES A DAY ONE IN THE MORNING AND ONE NIGHT)
  2. LYRICA [Suspect]
     Active Substance: PREGABALIN
     Indication: POST HERPETIC NEURALGIA
     Dosage: 100 MG, 2X/DAY
     Route: 048
     Dates: start: 20111216

REACTIONS (5)
  - Tremor [Unknown]
  - Myocardial infarction [Recovered/Resolved with Sequelae]
  - Pneumonia [Recovered/Resolved with Sequelae]
  - Laziness [Unknown]
  - Malaise [Unknown]

NARRATIVE: CASE EVENT DATE: 201705
